FAERS Safety Report 4537548-5 (Version None)
Quarter: 2005Q1

REPORT INFORMATION
  Report Type: 
  Country: None (occurrence: None)
  Receive Date: 20041216
  Receipt Date: 20040924
  Transmission Date: 20050727
  Serious: Yes (Death)
  Sender: FDA-Public Use
  Company Number: HQWYE336927SEP04

PATIENT
  Sex: Female

DRUGS (2)
  1. EFFEXOR XR [Suspect]
     Dosage: 150 MG ORAL; SEE IMAGE
     Route: 048
  2. ZYPREXA [Concomitant]

REACTIONS (1)
  - COMPLETED SUICIDE [None]
